FAERS Safety Report 19850241 (Version 1)
Quarter: 2021Q3

REPORT INFORMATION
  Report Type: Spontaneous
  Country: ES (occurrence: ES)
  Receive Date: 20210918
  Receipt Date: 20210918
  Transmission Date: 20211014
  Serious: Yes (Hospitalization, Other)
  Sender: FDA-Public Use
  Company Number: ES-ACCORD-238838

PATIENT
  Age: 26 Year
  Sex: Female

DRUGS (3)
  1. AZACITIDINE. [Suspect]
     Active Substance: AZACITIDINE
     Indication: ACUTE MYELOID LEUKAEMIA
     Dates: start: 202007
  2. POSACONAZOLE [Interacting]
     Active Substance: POSACONAZOLE
     Indication: ANTIFUNGAL PROPHYLAXIS
     Dosage: POSACONAZOLE WAS REINSTATED.
  3. VENETOCLAX. [Interacting]
     Active Substance: VENETOCLAX
     Indication: ACUTE MYELOID LEUKAEMIA
     Dosage: UPTITRATED FROM 100 MG DAILY TO A MAXIMUM DOSE OF 400 MG

REACTIONS (5)
  - Drug interaction [Unknown]
  - Paronychia [Unknown]
  - Myelosuppression [Unknown]
  - Febrile neutropenia [Unknown]
  - Asthenia [Unknown]
